FAERS Safety Report 8571975-4 (Version None)
Quarter: 2012Q3

REPORT INFORMATION
  Report Type: 
  Country: None (occurrence: None)
  Receive Date: 20120724
  Receipt Date: 20120710
  Transmission Date: 20120928
  Serious: Yes (Hospitalization)
  Sender: FDA-Public Use
  Company Number: DSM-2012-00768

PATIENT
  Age: 79 Year
  Sex: Male

DRUGS (5)
  1. LERCAPRESS (ENALAPRIL MALEATE, LERCANIDIPINE HYDROCHLORIDE) (ENALAPRIL [Suspect]
     Indication: HYPERTENSION
     Dosage: ORAL
     Route: 048
     Dates: start: 20120328, end: 20120427
  2. FINASTERIDE [Concomitant]
  3. OLMESARTAN MEDOXOMIL AND HYDROCHLOROTHIZIDE [Suspect]
     Indication: HYPERTENSION
     Dosage: ORAL
     Route: 048
     Dates: start: 20120428, end: 20120503
  4. AXELER (AMLODIPINE, OLMESARTAN MEDOXOMIL) (TABLET) (AMLODIPINE, OLMESA [Suspect]
     Indication: HYPERTENSION
     Dosage: ORAL
     Route: 048
     Dates: start: 20090423, end: 20120327
  5. KARDEGIC (ACETYLSALICYLATE LYSINE) (ACETYLSALICYLATE LYSINE) [Concomitant]

REACTIONS (7)
  - URTICARIA [None]
  - RASH ERYTHEMATOUS [None]
  - RASH PRURITIC [None]
  - ECZEMA [None]
  - RASH GENERALISED [None]
  - CUTANEOUS VASCULITIS [None]
  - EXFOLIATIVE RASH [None]
